FAERS Safety Report 26045112 (Version 1)
Quarter: 2025Q4

REPORT INFORMATION
  Report Type: Spontaneous
  Country: CH (occurrence: CH)
  Receive Date: 20251114
  Receipt Date: 20251114
  Transmission Date: 20260118
  Serious: Yes (Death, Other)
  Sender: ALKEM
  Company Number: CH-ALKEM LABORATORIES LIMITED-CH-ALKEM-2025-12088

PATIENT
  Age: 20 Year
  Sex: Male
  Weight: 53 kg

DRUGS (5)
  1. AMPHETAMINE SULFATE [Suspect]
     Active Substance: AMPHETAMINE SULFATE
     Indication: Product used for unknown indication
     Dosage: UNK
     Route: 065
  2. CLONAZAFONE [Suspect]
     Active Substance: CLONAZAFONE
     Indication: Product used for unknown indication
     Dosage: UNK
     Route: 048
  3. CLONAZEPAM [Suspect]
     Active Substance: CLONAZEPAM
     Indication: Product used for unknown indication
     Dosage: UNK
     Route: 065
  4. FLUETONITAZENE [Suspect]
     Active Substance: FLUETONITAZENE
     Indication: Product used for unknown indication
     Dosage: UNK (PROPYLENE GLYCOL)
     Route: 065
  5. NALOXONE [Suspect]
     Active Substance: NALOXONE
     Indication: Product used for unknown indication
     Dosage: UNK
     Route: 065

REACTIONS (12)
  - Brain oedema [Fatal]
  - Pulmonary haemorrhage [Fatal]
  - Pulmonary oedema [Fatal]
  - Respiratory depression [Fatal]
  - Gastric haemorrhage [Fatal]
  - Aspiration of gastric residual [Fatal]
  - Seizure [Fatal]
  - Cardiac arrest [Unknown]
  - Cyanosis [Unknown]
  - Toxicity to various agents [Fatal]
  - Overdose [Fatal]
  - Loss of consciousness [Unknown]
